FAERS Safety Report 4775295-5 (Version None)
Quarter: 2005Q3

REPORT INFORMATION
  Report Type: 
  Country: None (occurrence: None)
  Receive Date: 20050920
  Receipt Date: 20050920
  Transmission Date: 20060218
  Serious: Yes (Death, Hospitalization)
  Sender: FDA-Public Use
  Company Number: None

PATIENT
  Sex: Female
  Weight: 89.22 kg

DRUGS (6)
  1. CARBOPLATIN [Suspect]
     Indication: ENDOMETRIAL CANCER
     Dosage: SEE IMAGE
     Dates: start: 20050804, end: 20050804
  2. TAXOL [Suspect]
     Dosage: SEE IMAGE
     Dates: start: 20050804, end: 20050804
  3. PERCOCET [Concomitant]
  4. MS CONTIN [Concomitant]
  5. VICODIN [Concomitant]
  6. SENACOT [Concomitant]

REACTIONS (16)
  - ATELECTASIS [None]
  - DYSPNOEA [None]
  - HYDRONEPHROSIS [None]
  - LUNG INFILTRATION [None]
  - METASTASES TO ABDOMINAL CAVITY [None]
  - METASTASES TO LIVER [None]
  - METASTASES TO LUNG [None]
  - METASTASIS [None]
  - METASTATIC NEOPLASM [None]
  - OBSTRUCTION [None]
  - PLEURAL EFFUSION [None]
  - PULMONARY EMBOLISM [None]
  - PULMONARY HAEMORRHAGE [None]
  - SUPERINFECTION LUNG [None]
  - URETERAL DISORDER [None]
  - VENA CAVA THROMBOSIS [None]
